FAERS Safety Report 15246392 (Version 1)
Quarter: 2018Q3

REPORT INFORMATION
  Report Type: Spontaneous
  Country: US (occurrence: US)
  Receive Date: 20180806
  Receipt Date: 20180806
  Transmission Date: 20181010
  Serious: Yes (Death, Other)
  Sender: FDA-Public Use
  Company Number: US-PFIZER INC-2018304922

PATIENT
  Age: 52 Year
  Sex: Male

DRUGS (4)
  1. MEROPENEM. [Suspect]
     Active Substance: MEROPENEM
     Indication: KLEBSIELLA SEPSIS
     Dosage: UNK
  2. TIGECYCLINE. [Suspect]
     Active Substance: TIGECYCLINE
     Indication: KLEBSIELLA SEPSIS
     Dosage: UNK
  3. COLISTIN [Suspect]
     Active Substance: COLISTIN
     Dosage: 1.75 MG/KG EVERY 12 HOURS
  4. COLISTIN [Suspect]
     Active Substance: COLISTIN
     Indication: KLEBSIELLA SEPSIS
     Dosage: 5 MG/KG, UNK (LOADING DOSE OF 5 MG/KG IDEAL BODY WEIGHT)

REACTIONS (1)
  - Pathogen resistance [Fatal]
